FAERS Safety Report 24363210 (Version 1)
Quarter: 2024Q3

REPORT INFORMATION
  Report Type: Spontaneous
  Country: RO (occurrence: RO)
  Receive Date: 20240925
  Receipt Date: 20240925
  Transmission Date: 20241017
  Serious: Yes (Other)
  Sender: SANDOZ
  Company Number: RO-AMGEN-ROUSP2024180424

PATIENT
  Age: 25 Year
  Sex: Male

DRUGS (5)
  1. ADALIMUMAB [Suspect]
     Active Substance: ADALIMUMAB
     Indication: Colitis
     Dosage: 40 MG, Q2W
     Route: 065
  2. ADALIMUMAB [Suspect]
     Active Substance: ADALIMUMAB
     Dosage: 40 MG, Q2W
     Route: 065
  3. AZATHIOPRINE [Concomitant]
     Active Substance: AZATHIOPRINE
     Indication: Colitis
     Dosage: 100 MG, QD
     Route: 065
  4. MESALAMINE [Concomitant]
     Active Substance: MESALAMINE
     Indication: Colitis
     Dosage: 3 MG, QD
     Route: 065
  5. MESALAMINE [Concomitant]
     Active Substance: MESALAMINE
     Dosage: 4 MG, QD
     Route: 065

REACTIONS (12)
  - Diarrhoea haemorrhagic [Recovered/Resolved]
  - Cytomegalovirus infection [Recovered/Resolved]
  - Thrombocytosis [Recovered/Resolved]
  - Normochromic normocytic anaemia [Recovered/Resolved]
  - Faecal calprotectin increased [Recovered/Resolved]
  - Hypoalbuminaemia [Recovered/Resolved]
  - Serum ferritin increased [Recovered/Resolved]
  - C-reactive protein increased [Recovered/Resolved]
  - Electrolyte imbalance [Recovered/Resolved]
  - Hypoproteinaemia [Recovered/Resolved]
  - Weight decreased [Recovered/Resolved]
  - Off label use [Unknown]
